FAERS Safety Report 25164295 (Version 1)
Quarter: 2025Q2

REPORT INFORMATION
  Report Type: Spontaneous
  Country: US (occurrence: US)
  Receive Date: 20250405
  Receipt Date: 20250405
  Transmission Date: 20250717
  Serious: Yes (Life-Threatening, Hospitalization)
  Sender: AMGEN
  Company Number: US-AMGEN-USASP2025065125

PATIENT
  Sex: Female

DRUGS (1)
  1. IMDELLTRA [Suspect]
     Active Substance: TARLATAMAB-DLLE
     Indication: Small cell lung cancer extensive stage
     Route: 065
     Dates: start: 20250324, end: 20250324

REACTIONS (2)
  - Tumour lysis syndrome [Recovering/Resolving]
  - Sputum culture positive [Recovering/Resolving]

NARRATIVE: CASE EVENT DATE: 20250101
